FAERS Safety Report 4615888-9 (Version None)
Quarter: 2005Q1

REPORT INFORMATION
  Report Type: 
  Country: None (occurrence: None)
  Receive Date: 20050318
  Receipt Date: 20050310
  Transmission Date: 20050727
  Serious: Yes (Hospitalization)
  Sender: FDA-Public Use
  Company Number: 2004UW22919

PATIENT
  Age: 63 Year
  Sex: Male

DRUGS (4)
  1. CRESTOR [Suspect]
     Dosage: 40 MG
     Dates: start: 20040301
  2. COUMADIN [Concomitant]
  3. RAMIPRIL [Concomitant]
  4. LIPITOR [Concomitant]

REACTIONS (3)
  - HAEMORRHAGE URINARY TRACT [None]
  - HEPATITIS [None]
  - INTERNATIONAL NORMALISED RATIO INCREASED [None]
